FAERS Safety Report 8763096 (Version 5)
Quarter: 2014Q2

REPORT INFORMATION
  Report Type: Report from Study
  Country: US (occurrence: US)
  Receive Date: 20120831
  Receipt Date: 20140625
  Transmission Date: 20141212
  Serious: Yes (Hospitalization)
  Sender: FDA-Public Use
  Company Number: US-US-EMD SERONO, INC.-7157014

PATIENT
  Age: 41 Year
  Sex: Male

DRUGS (3)
  1. REBIF [Suspect]
     Indication: PROGRESSIVE MULTIPLE SCLEROSIS
     Route: 058
     Dates: start: 20120620
  2. DETROL                             /01350201/ [Concomitant]
     Indication: URINARY INCONTINENCE
  3. FLOMAX                             /00889901/ [Concomitant]
     Indication: URINARY INCONTINENCE

REACTIONS (6)
  - Decubitus ulcer [Recovering/Resolving]
  - Urinary tract infection [Unknown]
  - Muscle atrophy [Unknown]
  - Depression [Recovering/Resolving]
  - Influenza like illness [Not Recovered/Not Resolved]
  - Drug ineffective [Unknown]
